FAERS Safety Report 13369197 (Version 9)
Quarter: 2020Q3

REPORT INFORMATION
  Report Type: Spontaneous
  Country: JP (occurrence: JP)
  Receive Date: 20170324
  Receipt Date: 20200703
  Transmission Date: 20201102
  Serious: Yes (Hospitalization, Congenital Anomaly, Other)
  Sender: FDA-Public Use
  Company Number: PHJP2017JP009374

PATIENT
  Sex: Male
  Weight: 2.38 kg

DRUGS (7)
  1. MAGSENT [Concomitant]
     Active Substance: DEXTROSE\MAGNESIUM SULFATE HEPTAHYDRATE
     Indication: PREMATURE LABOUR
  2. FOLIC ACID. [Concomitant]
     Active Substance: FOLIC ACID
     Indication: FOETAL EXPOSURE DURING PREGNANCY
     Dosage: 5 MG
     Route: 064
  3. MAGNESIUM [Concomitant]
     Active Substance: MAGNESIUM
     Indication: FOETAL EXPOSURE DURING PREGNANCY
     Dosage: 330 MG, QD
     Route: 064
     Dates: start: 20160606, end: 20160616
  4. ALPROSTADIL. [Concomitant]
     Active Substance: ALPROSTADIL
     Indication: ARTERIAL STENOSIS
     Dosage: UNK
     Route: 065
  5. MAGSENT [Concomitant]
     Active Substance: DEXTROSE\MAGNESIUM SULFATE HEPTAHYDRATE
     Indication: FOETAL ARRHYTHMIA
     Dosage: 10ML/H?5ML/H, UNK
     Route: 065
     Dates: start: 20160526, end: 20160630
  6. TEGRETOL [Suspect]
     Active Substance: CARBAMAZEPINE
     Indication: FOETAL EXPOSURE DURING PREGNANCY
     Dosage: 100 MG, UNK
     Route: 064
  7. UTEMERIN [Concomitant]
     Active Substance: RITODRINE
     Indication: PREMATURE LABOUR
     Dosage: 15 MG, UNK
     Route: 065
     Dates: start: 20160418

REACTIONS (6)
  - Low birth weight baby [Unknown]
  - Premature baby [Unknown]
  - Epilepsy [Recovered/Resolved]
  - Foetal exposure timing unspecified [Unknown]
  - Heart disease congenital [Unknown]
  - Long QT syndrome congenital [Recovering/Resolving]
